FAERS Safety Report 13738867 (Version 2)
Quarter: 2017Q3

REPORT INFORMATION
  Report Type: Spontaneous
  Country: NL (occurrence: NL)
  Receive Date: 20170710
  Receipt Date: 20170731
  Transmission Date: 20171127
  Serious: No
  Sender: FDA-Public Use
  Company Number: NL-PFIZER INC-2016450369

PATIENT
  Age: 39 Year
  Sex: Female

DRUGS (4)
  1. SOMAVERT [Suspect]
     Active Substance: PEGVISOMANT
     Dosage: 80 MG (40 + 40MG), CYCLIC
     Route: 058
     Dates: end: 201704
  2. SOMAVERT [Suspect]
     Active Substance: PEGVISOMANT
     Indication: ACROMEGALY
     Dosage: 80 MG, CYCLIC (1X/WEEK)
     Route: 058
     Dates: start: 20160922
  3. SOMAVERT [Suspect]
     Active Substance: PEGVISOMANT
     Dosage: 60 MG, WEEKLY (1X/WEEK)
     Route: 058
     Dates: start: 20170613
  4. SOMAVERT [Suspect]
     Active Substance: PEGVISOMANT
     Dosage: 40 MG, WEEKLY (1X/WEEK)
     Route: 058
     Dates: start: 201704, end: 20170612

REACTIONS (1)
  - Off label use [Unknown]

NARRATIVE: CASE EVENT DATE: 20160922
